FAERS Safety Report 6867240-3 (Version None)
Quarter: 2010Q3

REPORT INFORMATION
  Report Type: 
  Country: None (occurrence: None)
  Receive Date: 20100722
  Receipt Date: 20100722
  Transmission Date: 20110219
  Serious: Yes (Disabling)
  Sender: FDA-Public Use
  Company Number: None

PATIENT
  Sex: Male
  Weight: 79.3795 kg

DRUGS (2)
  1. SEROQUEL [Suspect]
     Indication: DEPRESSION
     Dosage: 100 MG DAY FOOD
     Dates: start: 20090706, end: 20100201
  2. SERTRALINE HYDROCHLORIDE [Suspect]
     Indication: SLEEP DISORDER
     Dosage: 100 MG DAY FOOD

REACTIONS (1)
  - MUSCULAR WEAKNESS [None]
